FAERS Safety Report 14259734 (Version 1)
Quarter: 2017Q4

REPORT INFORMATION
  Report Type: Spontaneous
  Country: IT (occurrence: IT)
  Receive Date: 20171207
  Receipt Date: 20171207
  Transmission Date: 20180321
  Serious: Yes (Other)
  Sender: FDA-Public Use
  Company Number: IT-PFIZER INC-2017522407

PATIENT
  Age: 77 Year
  Sex: Male

DRUGS (3)
  1. PEPTAZOL [Suspect]
     Active Substance: PANTOPRAZOLE SODIUM
     Dosage: 1 DF, 1X/DAY
     Route: 030
  2. ZYTIGA [Suspect]
     Active Substance: ABIRATERONE ACETATE
     Indication: NEOPLASM PROSTATE
     Dosage: 4 DF, 1X/DAY
     Route: 048
  3. DELTACORTENE [Suspect]
     Active Substance: PREDNISONE
     Dosage: UNK
     Route: 065

REACTIONS (3)
  - Haemorrhage urinary tract [Unknown]
  - Incorrect route of drug administration [Unknown]
  - Haematuria [Unknown]

NARRATIVE: CASE EVENT DATE: 20170301
